FAERS Safety Report 8208728-2 (Version None)
Quarter: 2012Q1

REPORT INFORMATION
  Report Type: 
  Country: None (occurrence: None)
  Receive Date: 20120314
  Receipt Date: 20120306
  Transmission Date: 20120608
  Serious: Yes (Other)
  Sender: FDA-Public Use
  Company Number: US-BAYER-2011-113030

PATIENT
  Age: 27 Year
  Sex: Female
  Weight: 79.365 kg

DRUGS (19)
  1. ACIPHEX [Concomitant]
     Dosage: UNK UNK, BID
     Route: 048
     Dates: start: 20091118
  2. HYDROCODONE BITARTRATE AND ACETAMINOPHEN [Concomitant]
     Dosage: 5 MG, PRN
     Route: 048
     Dates: start: 20091004
  3. BENADRYL [Concomitant]
     Dosage: 25 MG, Q4HR
     Route: 048
     Dates: start: 20091118
  4. PREDNISONE TAB [Concomitant]
     Dosage: 40 MG, QD
     Route: 048
     Dates: start: 20091118
  5. MIRTAZAPINE [Concomitant]
     Dosage: 15 MG, HS
     Route: 048
     Dates: start: 20091009
  6. TRAMADOL HCL [Concomitant]
     Dosage: UNK
     Route: 048
     Dates: start: 20091018
  7. ROBITUSSIN A-C [CODEINE PHOSPHATE,GUAIFENESIN] [Concomitant]
     Dosage: UNK UNK, PRN
     Route: 048
     Dates: start: 20091019
  8. TAMIFLU [Concomitant]
     Dosage: 75 MG, BID
     Route: 048
     Dates: start: 20091018
  9. LOVENOX [Concomitant]
     Dosage: UNK
     Route: 058
     Dates: start: 20091118
  10. PHENAZOPYRIDINE HCL TAB [Concomitant]
     Dosage: 200 MG, TID
     Route: 048
     Dates: start: 20091118
  11. PROMETHAZINE [Concomitant]
     Dosage: 25 MG, Q3HR
     Route: 048
     Dates: start: 20091120
  12. YASMIN [Suspect]
     Dosage: UNK
     Route: 048
     Dates: start: 20060120, end: 20091123
  13. TRAZODONE HCL [Concomitant]
     Dosage: 50 MG, HS
     Route: 048
     Dates: start: 20091118
  14. DEPO-PROVERA [Concomitant]
     Dosage: UNK
     Dates: start: 20091113
  15. IBUPROFEN [Concomitant]
     Dosage: UNK
     Route: 048
  16. YAZ [Suspect]
     Dosage: UNK
     Route: 048
     Dates: start: 20060120, end: 20091123
  17. DARVOCET-N 50 [Concomitant]
     Dosage: UNK UNK, PRN
     Route: 048
     Dates: start: 20090822
  18. TYLENOL W/ CODEINE [Concomitant]
     Dosage: UNK
     Route: 048
     Dates: start: 20091102
  19. CIPRO [Concomitant]
     Dosage: 250 MG, BID
     Route: 048
     Dates: start: 20091118

REACTIONS (6)
  - EMOTIONAL DISTRESS [None]
  - ANXIETY [None]
  - GENERAL PHYSICAL HEALTH DETERIORATION [None]
  - INJURY [None]
  - PULMONARY EMBOLISM [None]
  - PAIN [None]
